FAERS Safety Report 4546894-0 (Version None)
Quarter: 2005Q1

REPORT INFORMATION
  Report Type: 
  Country: None (occurrence: None)
  Receive Date: 20050105
  Receipt Date: 20041217
  Transmission Date: 20050727
  Serious: Yes (Life-Threatening)
  Sender: FDA-Public Use
  Company Number: CA_041007317

PATIENT
  Age: 66 Year
  Sex: Female

DRUGS (6)
  1. CIALIS [Suspect]
     Indication: LIBIDO DECREASED
     Dosage: 10 MG
     Dates: start: 20041005, end: 20041005
  2. ANDRIOL(TESTOSTERONE UNDECANOATE) [Concomitant]
  3. ESTRABETA (ESTRADIOL) [Concomitant]
  4. ATIVAN [Concomitant]
  5. AVELOX [Concomitant]
  6. PROMETRIUM [Concomitant]

REACTIONS (10)
  - ABDOMINAL PAIN [None]
  - DYSPHAGIA [None]
  - DYSPNOEA [None]
  - HEADACHE [None]
  - INFLUENZA LIKE ILLNESS [None]
  - OROPHARYNGEAL SWELLING [None]
  - PAIN IN EXTREMITY [None]
  - SPEECH DISORDER [None]
  - TREMOR [None]
  - VISION BLURRED [None]
